FAERS Safety Report 4807804-1 (Version None)
Quarter: 2005Q4

REPORT INFORMATION
  Report Type: 
  Country: None (occurrence: None)
  Receive Date: 20051024
  Receipt Date: 20051014
  Transmission Date: 20060501
  Serious: Yes (Other)
  Sender: FDA-Public Use
  Company Number: CA-ABBOTT-05P-028-0314462-00

PATIENT
  Sex: Female
  Weight: 41.768 kg

DRUGS (7)
  1. HUMIRA 40 MG/ 0.8 ML PRE-FILLED SYRINGE [Suspect]
     Indication: RHEUMATOID ARTHRITIS
     Route: 058
     Dates: start: 20040511
  2. ATENOLOL [Concomitant]
     Indication: HYPERTENSION
     Route: 048
     Dates: start: 20050201
  3. INDOMETHACIN [Concomitant]
     Indication: DRUG USE FOR UNKNOWN INDICATION
     Route: 048
  4. OMEPRAZOLE [Concomitant]
     Indication: GASTRIC ULCER
     Route: 048
  5. OMEPRAZOLE [Concomitant]
     Indication: GASTROOESOPHAGEAL REFLUX DISEASE
  6. METOCLOPRAMIDE [Concomitant]
     Indication: GASTROOESOPHAGEAL REFLUX DISEASE
     Route: 048
  7. BROMAZEPAM [Concomitant]
     Indication: ANXIETY
     Route: 048

REACTIONS (4)
  - CYST RUPTURE [None]
  - DERMAL CYST [None]
  - DYSPHAGIA [None]
  - LIP DISORDER [None]
